FAERS Safety Report 17481922 (Version 1)
Quarter: 2020Q1

REPORT INFORMATION
  Report Type: Spontaneous
  Country: CN (occurrence: CN)
  Receive Date: 20200302
  Receipt Date: 20200302
  Transmission Date: 20200409
  Serious: Yes (Other)
  Sender: FDA-Public Use
  Company Number: CN-BAXTER-2020BAX004729

PATIENT
  Age: 70 Year
  Sex: Female
  Weight: 58 kg

DRUGS (8)
  1. 0.9% SODIUM CHLORIDE INJECTION [Suspect]
     Active Substance: SODIUM CHLORIDE
     Indication: MEDICATION DILUTION
     Dosage: TC REGIMEN, ENDOXAN 900 MG + 0.9% NS
     Route: 041
     Dates: start: 20191227, end: 20191227
  2. PACLITAXEL ALBUMIN BOUND [Suspect]
     Active Substance: PACLITAXEL
     Dosage: SELF-PREPARED MEDICATION UNKNOWN, TC REGIMEN, DOSE RE-INTRODUCED, PACLITAXEL + 0.9% NS
     Route: 041
  3. ENDOXAN [Suspect]
     Active Substance: CYCLOPHOSPHAMIDE
     Dosage: DOSE RE-INTRODUCED, TC REGIMEN, ENDOXAN + 0.9% NS
     Route: 041
  4. 0.9% SODIUM CHLORIDE INJECTION [Suspect]
     Active Substance: SODIUM CHLORIDE
     Dosage: TC REGIMEN, PACLITAXEL 360 MG + 0.9% NS
     Route: 041
     Dates: start: 20191227, end: 20191227
  5. 0.9% SODIUM CHLORIDE INJECTION [Suspect]
     Active Substance: SODIUM CHLORIDE
     Dosage: DOSE RE-INTRODUCED, TC REGIMEN, ENDOXAN + 0.9% NS
     Route: 041
  6. ENDOXAN [Suspect]
     Active Substance: CYCLOPHOSPHAMIDE
     Indication: BREAST CANCER FEMALE
     Dosage: TC REGIMEN, ENDOXAN + 0.9% NS 100 ML
     Route: 041
     Dates: start: 20191227, end: 20191227
  7. PACLITAXEL ALBUMIN BOUND [Suspect]
     Active Substance: PACLITAXEL
     Indication: BREAST CANCER FEMALE
     Dosage: SELF-PREPARED MEDICATION UNKNOWN, TC REGIMEN, PACLITAXEL + 0.9% NS 100 ML
     Route: 041
     Dates: start: 20191227, end: 20191227
  8. 0.9% SODIUM CHLORIDE INJECTION [Suspect]
     Active Substance: SODIUM CHLORIDE
     Dosage: DOSE RE-INTRODUCED, TC REGIMEN, PACLITAXEL + 0.9% NS
     Route: 041

REACTIONS (1)
  - Bone marrow failure [Recovered/Resolved]

NARRATIVE: CASE EVENT DATE: 20191230
